FAERS Safety Report 19615704 (Version 1)
Quarter: 2021Q3

REPORT INFORMATION
  Report Type: Spontaneous
  Country: TR (occurrence: TR)
  Receive Date: 20210727
  Receipt Date: 20210727
  Transmission Date: 20211014
  Serious: Yes (Other)
  Sender: FDA-Public Use
  Company Number: TR-PFIZER INC-2021903977

PATIENT
  Age: 25 Year
  Sex: Female
  Weight: 54 kg

DRUGS (1)
  1. FLUCAN [FLUCONAZOLE] [Suspect]
     Active Substance: FLUCONAZOLE
     Indication: VULVOVAGINAL MYCOTIC INFECTION
     Dosage: 150 MG, 2X/DAY
     Route: 048
     Dates: start: 20210702, end: 20210706

REACTIONS (3)
  - Off label use [Unknown]
  - Rash macular [Recovering/Resolving]
  - Contusion [Unknown]

NARRATIVE: CASE EVENT DATE: 20210702
